FAERS Safety Report 23357376 (Version 4)
Quarter: 2024Q2

REPORT INFORMATION
  Report Type: Spontaneous
  Country: JP (occurrence: JP)
  Receive Date: 20240102
  Receipt Date: 20240514
  Transmission Date: 20240716
  Serious: Yes (Other)
  Sender: FDA-Public Use
  Company Number: JP-MSD-M2023-43570

PATIENT
  Age: 70 Year
  Sex: Male

DRUGS (1)
  1. KEYTRUDA [Suspect]
     Active Substance: PEMBROLIZUMAB
     Indication: Non-small cell lung cancer stage IV
     Dosage: 200 MILLIGRAM, Q3W
     Route: 041
     Dates: start: 202302, end: 202311

REACTIONS (2)
  - Sjogren^s syndrome [Unknown]
  - Dry mouth [Recovered/Resolved]

NARRATIVE: CASE EVENT DATE: 20231001
